FAERS Safety Report 6749197-9 (Version None)
Quarter: 2010Q2

REPORT INFORMATION
  Report Type: 
  Country: None (occurrence: None)
  Receive Date: 20100601
  Receipt Date: 20100525
  Transmission Date: 20101027
  Serious: Yes (Death)
  Sender: FDA-Public Use
  Company Number: US-GILEAD-2010-0029413

PATIENT
  Sex: Female
  Weight: 77.18 kg

DRUGS (18)
  1. LETAIRIS [Suspect]
     Indication: PULMONARY ARTERIAL HYPERTENSION
     Route: 048
     Dates: start: 20100507, end: 20100519
  2. COUMADIN [Concomitant]
  3. PLAVIX [Concomitant]
  4. LASIX [Concomitant]
  5. METOPROLOL TARTRATE [Concomitant]
  6. LIPITOR [Concomitant]
  7. ALBUTEROL [Concomitant]
  8. SPIRIVA [Concomitant]
  9. ADVAIR DISKUS 100/50 [Concomitant]
  10. PERIACTIN [Concomitant]
  11. MIRAPEX [Concomitant]
  12. CITALOPRAM HYDROBROMIDE [Concomitant]
  13. OMEPRAZOLE [Concomitant]
  14. MEGACE [Concomitant]
  15. ATIVAN [Concomitant]
  16. ARIMIDEX [Concomitant]
  17. COQ-10 [Concomitant]
  18. VITAMIN B COMPLEX CAP [Concomitant]

REACTIONS (1)
  - DEATH [None]
